FAERS Safety Report 18015415 (Version 3)
Quarter: 2020Q3

REPORT INFORMATION
  Report Type: Spontaneous
  Country: NL (occurrence: NL)
  Receive Date: 20200713
  Receipt Date: 20200806
  Transmission Date: 20201103
  Serious: Yes (Other)
  Sender: FDA-Public Use
  Company Number: NL-SA-2020SA177722

PATIENT

DRUGS (4)
  1. PREDNISONE. [Concomitant]
     Active Substance: PREDNISONE
     Indication: WHITE BLOOD CELL COUNT INCREASED
     Dosage: 30 MG
  2. VENTOLIN [Concomitant]
     Active Substance: ALBUTEROL SULFATE
     Dosage: DA 4X2 REQUIRED
  3. DUPILUMAB [Suspect]
     Active Substance: DUPILUMAB
     Dosage: 300 MG
  4. AZITHROMYCIN ANHYDROUS. [Concomitant]
     Active Substance: AZITHROMYCIN ANHYDROUS

REACTIONS (21)
  - Chills [Unknown]
  - Wheezing [Recovered/Resolved]
  - Respiratory disorder [Unknown]
  - Respiration abnormal [Unknown]
  - Throat irritation [Unknown]
  - Upper respiratory tract infection [Unknown]
  - Bronchiectasis [Unknown]
  - Lung infiltration [Unknown]
  - Ear pain [Unknown]
  - Dyspnoea exertional [Unknown]
  - Pain [Unknown]
  - Nasal congestion [Unknown]
  - Asthma [Unknown]
  - Respiratory rate increased [Unknown]
  - Throat clearing [Unknown]
  - White blood cell count increased [Unknown]
  - General physical health deterioration [Unknown]
  - Condition aggravated [Unknown]
  - Cough [Unknown]
  - Bronchial disorder [Unknown]
  - Eosinophil count increased [Unknown]

NARRATIVE: CASE EVENT DATE: 20200103
